FAERS Safety Report 5869022-8 (Version None)
Quarter: 2008Q3

REPORT INFORMATION
  Report Type: 
  Country: None (occurrence: None)
  Receive Date: 20080903
  Receipt Date: 20080828
  Transmission Date: 20090109
  Serious: Yes (Other)
  Sender: FDA-Public Use
  Company Number: A0744935A

PATIENT
  Age: 61 Year
  Sex: Male

DRUGS (6)
  1. ADVAIR DISKUS 100/50 [Suspect]
     Indication: ASTHMA
     Route: 055
     Dates: start: 20080101, end: 20080601
  2. SEREVENT [Suspect]
     Indication: ASTHMA
     Route: 055
  3. COMBIVENT [Concomitant]
  4. ATENOLOL [Concomitant]
  5. ZETIA [Concomitant]
  6. OMEPRAZOLE [Concomitant]

REACTIONS (6)
  - CATARACT [None]
  - CHEST PAIN [None]
  - DRY EYE [None]
  - PALPITATIONS [None]
  - VISION BLURRED [None]
  - WEIGHT INCREASED [None]
